FAERS Safety Report 6885244-1 (Version None)
Quarter: 2010Q3

REPORT INFORMATION
  Report Type: 
  Country: None (occurrence: None)
  Receive Date: 20100729
  Receipt Date: 20080116
  Transmission Date: 20110219
  Serious: No
  Sender: FDA-Public Use
  Company Number: US-PFIZER INC-2008005028

PATIENT
  Age: 45 Year
  Sex: Female

DRUGS (2)
  1. CELEBREX [Suspect]
     Indication: PAIN IN EXTREMITY
  2. CELEBREX [Suspect]
     Indication: INFLAMMATION

REACTIONS (3)
  - DRUG INEFFECTIVE [None]
  - PALLOR [None]
  - PRURITUS [None]
